FAERS Safety Report 6027168-8 (Version None)
Quarter: 2009Q1

REPORT INFORMATION
  Report Type: 
  Country: None (occurrence: None)
  Receive Date: 20090105
  Receipt Date: 20081230
  Transmission Date: 20090719
  Serious: Yes (Hospitalization)
  Sender: FDA-Public Use
  Company Number: US-PFIZER INC-2008078972

PATIENT
  Sex: Female
  Weight: 102.4 kg

DRUGS (6)
  1. FESOTERODINE [Suspect]
     Indication: HYPERTONIC BLADDER
     Route: 048
     Dates: start: 20080716, end: 20080918
  2. PLACEBO [Suspect]
     Indication: HYPERTONIC BLADDER
     Dosage: UNK
     Route: 048
     Dates: start: 20080716, end: 20080918
  3. LISINOPRIL [Concomitant]
     Dosage: 12.5 MG-10 MG,1 TAB(S) DAILY
     Route: 048
     Dates: start: 19950101, end: 20080918
  4. NEXIUM [Concomitant]
     Dosage: BID
     Route: 048
     Dates: start: 20070101, end: 20080918
  5. FLUOXETINE [Concomitant]
     Dosage: DAILY
     Route: 048
     Dates: start: 20060101, end: 20080918
  6. MAGNESIUM SULFATE [Concomitant]
     Route: 048
     Dates: start: 20080301, end: 20080918

REACTIONS (1)
  - RENAL FAILURE ACUTE [None]
